FAERS Safety Report 10304436 (Version 4)
Quarter: 2015Q1

REPORT INFORMATION
  Report Type: Spontaneous
  Country: JP (occurrence: JP)
  Receive Date: 20140715
  Receipt Date: 20150312
  Transmission Date: 20150720
  Serious: Yes (Disabling, Other)
  Sender: FDA-Public Use
  Company Number: JP-AMGEN-JPNSP2014052250

PATIENT
  Age: 63 Year
  Sex: Female
  Weight: 55 kg

DRUGS (35)
  1. LUMIGAN [Concomitant]
     Active Substance: BIMATOPROST
     Dosage: UNK, QD
     Route: 047
  2. BISOLVON [Concomitant]
     Active Substance: BROMHEXINE HYDROCHLORIDE
     Dosage: 4 MG, TID
     Route: 065
  3. CETIRIZINE [Concomitant]
     Active Substance: CETIRIZINE HYDROCHLORIDE
     Dosage: 10 MG, QD
     Route: 065
  4. UBRETID [Concomitant]
     Active Substance: DISTIGMINE BROMIDE
     Dosage: 1.25 MG, QD
     Route: 065
  5. NASONEX [Concomitant]
     Active Substance: MOMETASONE FUROATE
     Dosage: 2 DF, QD
     Route: 045
  6. ALLOID G [Concomitant]
     Active Substance: SODIUM ALGINATE
     Indication: DYSPEPSIA
     Dosage: 20 ML, QID
     Route: 048
     Dates: start: 20130905
  7. REBAMIPIDE [Concomitant]
     Active Substance: REBAMIPIDE
     Dosage: 100 MG, TID
     Route: 065
  8. FLUITRAN [Concomitant]
     Active Substance: TRICHLORMETHIAZIDE
     Dosage: 1 MG, QD
     Route: 065
  9. KREMEZIN [Concomitant]
     Active Substance: ACTIVATED CHARCOAL
     Dosage: 2 G, QD
     Route: 065
  10. VOLTAREN [Concomitant]
     Active Substance: DICLOFENAC SODIUM
     Dosage: 15 MG, QD
  11. ANYRUME [Concomitant]
     Active Substance: ACETAMINOPHEN
     Indication: CANCER PAIN
     Dosage: 600 MG, QID
     Route: 048
     Dates: start: 20130523
  12. FASTIC [Concomitant]
     Active Substance: NATEGLINIDE
     Dosage: 30 MG, TID
     Route: 065
  13. LANSOPRAZOLE. [Concomitant]
     Active Substance: LANSOPRAZOLE
     Dosage: 30 MG, QD
     Route: 065
  14. AMBROXOL [Concomitant]
     Active Substance: AMBROXOL
     Dosage: 15 MG, TID
     Route: 065
  15. HYALEIN MINI [Concomitant]
     Dosage: UNK, 5 TMS EVERY 1D
     Route: 047
  16. AZOPT [Concomitant]
     Active Substance: BRINZOLAMIDE
     Dosage: UNK, TID
     Route: 047
  17. RANMARK [Suspect]
     Active Substance: DENOSUMAB
     Indication: METASTASES TO BONE
     Dosage: 120 MG, UNK
     Route: 058
     Dates: start: 20130514, end: 20140502
  18. ALFAROL [Concomitant]
     Active Substance: ALFACALCIDOL
     Indication: PROPHYLAXIS
     Dosage: 1 MUG, QD
     Route: 048
     Dates: start: 20131004
  19. FENTOS [Concomitant]
     Active Substance: FENTANYL
     Indication: CANCER PAIN
     Dosage: 3 MG, QD
     Route: 050
     Dates: start: 20130809
  20. METHYCOOL [Concomitant]
     Active Substance: METHYLCOBALAMIN
     Dosage: 500 MUG, TID
     Route: 065
  21. SISAAL [Concomitant]
     Active Substance: DEXTROMETHORPHAN HYDROBROMIDE
     Dosage: 15 MG, TID
     Route: 065
  22. SYMBICORT [Concomitant]
     Active Substance: BUDESONIDE\FORMOTEROL FUMARATE DIHYDRATE
     Dosage: 1 DF, BID
     Route: 055
  23. ISODINE [Concomitant]
     Active Substance: POVIDONE-IODINE
     Dosage: UNK, QD-FEW TIMES
     Route: 065
  24. ABRAXANE [Concomitant]
     Active Substance: PACLITAXEL
     Indication: METASTASES TO PERITONEUM
  25. NORVASC [Concomitant]
     Active Substance: AMLODIPINE BESYLATE
     Dosage: 10 MG, QD
     Route: 065
  26. ABRAXANE [Concomitant]
     Active Substance: PACLITAXEL
     Indication: METASTASES TO BONE
     Dosage: 140 MG, QWK
     Route: 042
     Dates: start: 20130514, end: 20130705
  27. HERCEPTIN [Concomitant]
     Active Substance: TRASTUZUMAB
     Indication: METASTASES TO BONE
     Dosage: 320 MG, Q3WK
     Route: 042
     Dates: start: 201204, end: 20141219
  28. OXINORM                            /00045603/ [Concomitant]
     Indication: CANCER PAIN
     Dosage: 5 MG, AS NECESSARY
     Route: 048
     Dates: start: 20130816
  29. PERINDOPRIL [Concomitant]
     Active Substance: PERINDOPRIL
     Dosage: 2 MG, QD
     Route: 065
  30. CALCIUM L-ASPARTATE [Concomitant]
     Indication: PROPHYLAXIS
     Dosage: 400 MG, BID
     Route: 048
     Dates: start: 20131004
  31. DIOVAN [Concomitant]
     Active Substance: VALSARTAN
     Dosage: 160 MG, QD
     Route: 065
  32. KALIMATE [Concomitant]
     Active Substance: CALCIUM POLYSTYRENE SULFONATE
     Dosage: 5 G, QD
     Route: 065
  33. TULOBUTEN [Concomitant]
     Dosage: 2 MG, QD
  34. DETANTOL [Concomitant]
     Dosage: UNK, BID
     Route: 047
  35. ABRAXANE [Concomitant]
     Active Substance: PACLITAXEL
     Indication: METASTASES TO LUNG

REACTIONS (1)
  - Osteonecrosis of jaw [Recovering/Resolving]

NARRATIVE: CASE EVENT DATE: 201405
